FAERS Safety Report 16094983 (Version 1)
Quarter: 2019Q2

REPORT INFORMATION
  Report Type: Spontaneous
  Country: US (occurrence: US)
  Receive Date: 20190320
  Receipt Date: 20190320
  Transmission Date: 20190711
  Serious: Yes (Death)
  Sender: FDA-Public Use
  Company Number: None

PATIENT
  Sex: Male

DRUGS (11)
  1. CYCLOBENZAPR TAB 5MG [Concomitant]
  2. FOSAMAX TAB 70MG [Concomitant]
  3. LEVEMIR INJ FLEXPEN [Concomitant]
  4. MAGNESIUM-OX TAB 400MG [Concomitant]
  5. MULTI-VITAMN TAB [Concomitant]
  6. MYCOPHENOLATE [Suspect]
     Active Substance: MYCOPHENOLIC ACID
     Indication: HEART TRANSPLANT
     Route: 048
     Dates: start: 20110507
  7. MYCOPHENOLATE [Suspect]
     Active Substance: MYCOPHENOLIC ACID
     Indication: LUNG TRANSPLANT
     Route: 048
     Dates: start: 20110507
  8. BACTRIM TAB 400-80MG [Concomitant]
  9. OYST-CAL TAB 500MG [Concomitant]
  10. PROGRAF [Concomitant]
     Active Substance: TACROLIMUS\TACROLIMUS ANHYDROUS
  11. PRAVACHOL TAB 10MG [Concomitant]

REACTIONS (1)
  - Death [None]
